FAERS Safety Report 20810674 (Version 6)
Quarter: 2023Q1

REPORT INFORMATION
  Report Type: Spontaneous
  Country: US (occurrence: US)
  Receive Date: 20220510
  Receipt Date: 20230104
  Transmission Date: 20230418
  Serious: Yes (Other)
  Sender: FDA-Public Use
  Company Number: US-PFIZER INC-202200586461

PATIENT
  Age: 47 Year
  Sex: Female

DRUGS (6)
  1. IBRANCE [Suspect]
     Active Substance: PALBOCICLIB
     Indication: Breast cancer female
     Dosage: 125 MG, CYCLIC (TAKE 1 TABLET BY MOUTH ONCE DAILY FOR 21 DAYS THEN 7 DAYS OFF REPEAT)
     Route: 048
     Dates: start: 20220223
  2. IBRANCE [Suspect]
     Active Substance: PALBOCICLIB
     Dosage: 125 MG, CYCLIC (DAILY FOR 14 DAYS, THEN OFF FOR 14 DAYS, THEN REPEAT)
     Route: 048
     Dates: start: 20220223
  3. FASLODEX [Concomitant]
     Active Substance: FULVESTRANT
     Dosage: UNK (250/50ML)
  4. FASLODEX [Concomitant]
     Active Substance: FULVESTRANT
     Dosage: 50 ML (250/5ML)
  5. METOPROLOL SUCCINATE [Concomitant]
     Active Substance: METOPROLOL SUCCINATE
     Dosage: 25 MG (METOPROL SUC TAB 25MG ER)
  6. VITAMIN D3 [Concomitant]
     Active Substance: CHOLECALCIFEROL
     Dosage: 25 UG

REACTIONS (22)
  - Haemorrhage [Unknown]
  - Off label use [Unknown]
  - Product use issue [Unknown]
  - Intentional dose omission [Unknown]
  - Product dose omission issue [Unknown]
  - Nausea [Not Recovered/Not Resolved]
  - Contusion [Unknown]
  - Decreased appetite [Unknown]
  - Dry skin [Unknown]
  - Fatigue [Unknown]
  - Headache [Unknown]
  - White blood cell count decreased [Unknown]
  - Oral pain [Unknown]
  - Stomatitis [Unknown]
  - Nerve injury [Unknown]
  - Vomiting [Unknown]
  - Constipation [Unknown]
  - Diarrhoea [Unknown]
  - Pyrexia [Unknown]
  - Alopecia [Unknown]
  - Dyspnoea [Unknown]
  - Epistaxis [Unknown]

NARRATIVE: CASE EVENT DATE: 20220101
